FAERS Safety Report 9306464 (Version 1)
Quarter: 2013Q2

REPORT INFORMATION
  Report Type: Spontaneous
  Country: CH (occurrence: CH)
  Receive Date: 20130523
  Receipt Date: 20130523
  Transmission Date: 20140414
  Serious: Yes (Hospitalization)
  Sender: FDA-Public Use
  Company Number: CH-ASTRAZENECA-2013SE35017

PATIENT
  Age: 88 Year
  Sex: Female

DRUGS (12)
  1. SEROQUEL [Suspect]
     Route: 048
     Dates: start: 20130318
  2. TRITTICO [Suspect]
     Route: 048
     Dates: start: 20130318
  3. IMOVANE [Suspect]
     Route: 048
     Dates: start: 20130318
  4. LORAMET [Suspect]
     Route: 048
     Dates: start: 20130318
  5. SOTALOL [Suspect]
     Route: 048
  6. ASPIRIN CARDIO [Concomitant]
     Route: 048
  7. MEPHANOL [Concomitant]
     Route: 048
  8. METFORMIN [Concomitant]
     Route: 048
  9. PROLIA [Concomitant]
     Dosage: 60 MG IN EVERY SIXTH MONTH
     Route: 058
  10. PANTOZOL [Concomitant]
     Route: 048
  11. CRESTOR [Concomitant]
     Route: 048
     Dates: start: 20130318
  12. VESICARE [Concomitant]
     Route: 048
     Dates: start: 20130318

REACTIONS (9)
  - Confusional state [Recovering/Resolving]
  - Speech disorder [Recovering/Resolving]
  - Asthenia [Recovering/Resolving]
  - Fall [Unknown]
  - Cardiac failure [Unknown]
  - Viral upper respiratory tract infection [Unknown]
  - Psychomotor retardation [Unknown]
  - Drug effect increased [Recovered/Resolved]
  - Intentional drug misuse [Recovered/Resolved]
